APPROVED DRUG PRODUCT: DOXYLAMINE SUCCINATE AND PYRIDOXINE HYDROCHLORIDE
Active Ingredient: DOXYLAMINE SUCCINATE; PYRIDOXINE HYDROCHLORIDE
Strength: 10MG;10MG
Dosage Form/Route: TABLET, DELAYED RELEASE;ORAL
Application: A205811 | Product #001 | TE Code: AB
Applicant: ACTAVIS LABORATORIES FL INC
Approved: Aug 19, 2016 | RLD: No | RS: No | Type: RX